FAERS Safety Report 5841715-8 (Version None)
Quarter: 2008Q3

REPORT INFORMATION
  Report Type: 
  Country: None (occurrence: None)
  Receive Date: 20080812
  Receipt Date: 20080730
  Transmission Date: 20090109
  Serious: Yes (Hospitalization)
  Sender: FDA-Public Use
  Company Number: US-JNJFOC-20080700799

PATIENT
  Sex: Female
  Weight: 66.68 kg

DRUGS (9)
  1. CISAPRIDE [Suspect]
  2. CISAPRIDE [Suspect]
     Indication: IMPAIRED GASTRIC EMPTYING
  3. PRILOSEC [Concomitant]
     Indication: GASTROOESOPHAGEAL REFLUX DISEASE
  4. PREMARIN [Concomitant]
     Indication: HORMONE REPLACEMENT THERAPY
  5. MULTI-VITAMIN [Concomitant]
     Indication: MEDICAL DIET
  6. CLARITIN [Concomitant]
     Indication: SEASONAL ALLERGY
  7. LACTULOSE [Concomitant]
     Indication: CONSTIPATION
  8. MIRALAX [Concomitant]
     Indication: CONSTIPATION
  9. CITRUCEL [Concomitant]
     Indication: ABNORMAL FAECES

REACTIONS (2)
  - MITRAL VALVE PROLAPSE [None]
  - OEDEMA [None]
